FAERS Safety Report 16262769 (Version 1)
Quarter: 2019Q2

REPORT INFORMATION
  Report Type: Report from Study
  Country: US (occurrence: US)
  Receive Date: 20190502
  Receipt Date: 20190502
  Transmission Date: 20190711
  Serious: Yes (Hospitalization)
  Sender: FDA-Public Use
  Company Number: PHEH2019US018365

PATIENT
  Age: 28 Year
  Sex: Female

DRUGS (1)
  1. GILENYA [Suspect]
     Active Substance: FINGOLIMOD HYDROCHLORIDE
     Indication: PRODUCT USED FOR UNKNOWN INDICATION
     Route: 065
     Dates: start: 20190404

REACTIONS (5)
  - Hypoaesthesia [Unknown]
  - Visual impairment [Unknown]
  - Muscular weakness [Unknown]
  - Multiple sclerosis relapse [Unknown]
  - Fall [Unknown]

NARRATIVE: CASE EVENT DATE: 20190423
